FAERS Safety Report 5078449-6 (Version None)
Quarter: 2006Q3

REPORT INFORMATION
  Report Type: 
  Country: None (occurrence: None)
  Receive Date: 20060808
  Receipt Date: 20060724
  Transmission Date: 20061208
  Serious: Yes (Death, Other)
  Sender: FDA-Public Use
  Company Number: FR200607004864

PATIENT
  Age: 83 Year
  Sex: Female

DRUGS (2)
  1. FORTEO [Suspect]
     Indication: OSTEOPOROSIS
     Dosage: 20 UG, DAILY (1/D), SUBCUTANEOUS
     Route: 058
     Dates: start: 20060501, end: 20060601
  2. FORTEO PEN (FORTEO PEN), PEN, DISPOSABLE [Concomitant]

REACTIONS (4)
  - CANCER PAIN [None]
  - GENERAL PHYSICAL HEALTH DETERIORATION [None]
  - HYPERCALCAEMIA OF MALIGNANCY [None]
  - NEOPLASM MALIGNANT [None]
